FAERS Safety Report 13390613 (Version 1)
Quarter: 2017Q1

REPORT INFORMATION
  Report Type: Spontaneous
  Country: US (occurrence: US)
  Receive Date: 20170331
  Receipt Date: 20170331
  Transmission Date: 20170429
  Serious: No
  Sender: FDA-Public Use
  Company Number: US-PFIZER INC-2017140586

PATIENT
  Sex: Female

DRUGS (1)
  1. ADVIL [Suspect]
     Active Substance: IBUPROFEN
     Dosage: UNK

REACTIONS (6)
  - Dysgeusia [Unknown]
  - Feeling hot [Unknown]
  - Paraesthesia [Unknown]
  - Asthenia [Unknown]
  - Product odour abnormal [Unknown]
  - Intentional product misuse [Unknown]
